FAERS Safety Report 8274073-2 (Version None)
Quarter: 2012Q2

REPORT INFORMATION
  Report Type: 
  Country: None (occurrence: None)
  Receive Date: 20120409
  Receipt Date: 20120405
  Transmission Date: 20120825
  Serious: Yes (Other)
  Sender: FDA-Public Use
  Company Number: ADR-2009-6790

PATIENT
  Sex: Female

DRUGS (3)
  1. PRIALT [Concomitant]
  2. LIORESAL [Suspect]
     Indication: MUSCLE SPASTICITY
     Dosage: 50 MCG, DAILY, INTRATHE
     Route: 037
  3. DIALUDID [Concomitant]

REACTIONS (12)
  - DRUG EFFECT DECREASED [None]
  - DIZZINESS [None]
  - AGITATION [None]
  - RESTLESSNESS [None]
  - PRODUCT ODOUR ABNORMAL [None]
  - HERPES ZOSTER [None]
  - INSOMNIA [None]
  - VOMITING [None]
  - MUSCLE SPASTICITY [None]
  - CONDITION AGGRAVATED [None]
  - HEADACHE [None]
  - NAUSEA [None]
